FAERS Safety Report 10144998 (Version 1)
Quarter: 2014Q2

REPORT INFORMATION
  Report Type: Spontaneous
  Country: US (occurrence: US)
  Receive Date: 20140501
  Receipt Date: 20140501
  Transmission Date: 20141212
  Serious: No
  Sender: FDA-Public Use
  Company Number: US-009507513-1404USA010178

PATIENT
  Age: 12 Year
  Sex: Female

DRUGS (10)
  1. EMEND [Suspect]
     Indication: PROPHYLAXIS OF NAUSEA AND VOMITING
     Dosage: 125 MG ON THE 1ST DAY
     Route: 048
     Dates: start: 201402, end: 201402
  2. EMEND [Suspect]
     Dosage: 80 MG THE 2ND DAY
     Route: 048
     Dates: start: 201402, end: 201402
  3. EMEND [Suspect]
     Dosage: 80 MG THE 3ND DAY
     Route: 048
     Dates: start: 201402, end: 201402
  4. EMEND FOR INJECTION [Suspect]
     Indication: PROPHYLAXIS OF NAUSEA AND VOMITING
     Dosage: UNK, ON THE 2ND DAY
     Route: 042
     Dates: start: 201402, end: 201402
  5. CISPLATIN [Concomitant]
  6. ALOXI [Concomitant]
  7. DECADRON [Concomitant]
  8. ETOPOSIDE [Concomitant]
  9. ZOFRAN [Concomitant]
  10. PHENERGAN (PROMETHAZINE HYDROCHLORIDE) [Concomitant]

REACTIONS (3)
  - Dysphagia [Recovered/Resolved]
  - Vomiting [Recovered/Resolved]
  - Inappropriate schedule of drug administration [Unknown]
